FAERS Safety Report 15694256 (Version 1)
Quarter: 2018Q4

REPORT INFORMATION
  Report Type: Report from Study
  Country: None (occurrence: US)
  Receive Date: 20181206
  Receipt Date: 20181206
  Transmission Date: 20190205
  Serious: Yes (Other)
  Sender: FDA-Public Use
  Company Number: US-ABBVIE-18S-163-2576102-00

PATIENT
  Age: 30 Year
  Sex: Male

DRUGS (2)
  1. DEPAKOTE DELAYED RELEASE [Concomitant]
     Indication: SEIZURE
     Route: 048
     Dates: start: 20181127
  2. DEPAKOTE ER [Suspect]
     Active Substance: DIVALPROEX SODIUM
     Indication: GENERALISED TONIC-CLONIC SEIZURE
     Route: 048
     Dates: start: 2008, end: 20181127

REACTIONS (4)
  - Seizure [Recovered/Resolved]
  - Blood iron decreased [Unknown]
  - Blood potassium decreased [Unknown]
  - Dehydration [Unknown]

NARRATIVE: CASE EVENT DATE: 20181127
